FAERS Safety Report 8215796-0 (Version None)
Quarter: 2012Q1

REPORT INFORMATION
  Report Type: 
  Country: None (occurrence: None)
  Receive Date: 20120316
  Receipt Date: 20120307
  Transmission Date: 20120608
  Serious: Yes (Hospitalization)
  Sender: FDA-Public Use
  Company Number: US-ACTELION-A-NJ2011-58008

PATIENT

DRUGS (4)
  1. EPOPROSTENOL SODIUM [Suspect]
     Indication: PULMONARY ARTERIAL HYPERTENSION
     Dosage: 12 NG/KG, PER MIN
     Route: 041
     Dates: start: 20120307
  2. COUMADIN [Concomitant]
  3. SILDENAFIL [Concomitant]
  4. EPOPROSTENOL SODIUM [Suspect]
     Dosage: 12 NG/KG, PER MIN
     Route: 041
     Dates: start: 20110923, end: 20120301

REACTIONS (14)
  - WEIGHT DECREASED [None]
  - ARTHRALGIA [None]
  - DEVICE DAMAGE [None]
  - NAUSEA [None]
  - VOMITING [None]
  - BACK PAIN [None]
  - DECREASED APPETITE [None]
  - PAIN IN EXTREMITY [None]
  - VISION BLURRED [None]
  - FLUSHING [None]
  - HEADACHE [None]
  - FATIGUE [None]
  - JOINT SWELLING [None]
  - MUSCULOSKELETAL PAIN [None]
